FAERS Safety Report 14453845 (Version 2)
Quarter: 2018Q2

REPORT INFORMATION
  Report Type: Spontaneous
  Country: HR (occurrence: HR)
  Receive Date: 20180129
  Receipt Date: 20180514
  Transmission Date: 20180711
  Serious: Yes (Death)
  Sender: FDA-Public Use
  Company Number: HR-JNJFOC-20180132495

PATIENT
  Age: 70 Year
  Sex: Male

DRUGS (5)
  1. LOSARTIC [Concomitant]
     Active Substance: LOSARTAN POTASSIUM
     Route: 065
  2. OXAZEPAM. [Concomitant]
     Active Substance: OXAZEPAM
     Route: 065
  3. IMBRUVICA [Suspect]
     Active Substance: IBRUTINIB
     Indication: CHRONIC LYMPHOCYTIC LEUKAEMIA
     Dosage: ALSO REPORTED AS 3 X 1 CAPSULE OF 140 MG PER DAY
     Route: 048
     Dates: start: 201704
  4. INSULIN [Concomitant]
     Active Substance: INSULIN NOS
     Route: 065
  5. PREDUCTAL [Concomitant]
     Active Substance: TRIMETAZIDINE DIHYDROCHLORIDE
     Route: 065

REACTIONS (1)
  - Myocardial ischaemia [Fatal]
